FAERS Safety Report 5629806-8 (Version None)
Quarter: 2008Q1

REPORT INFORMATION
  Report Type: 
  Country: None (occurrence: None)
  Receive Date: 20080218
  Receipt Date: 20080208
  Transmission Date: 20080703
  Serious: Yes (Hospitalization)
  Sender: FDA-Public Use
  Company Number: PHBS2008GR01993

PATIENT
  Age: 45 Year
  Sex: Male

DRUGS (2)
  1. MYFORTIC [Suspect]
     Indication: TRANSPLANT
     Dosage: 720 MG/D
     Route: 048
  2. CORTISONE [Concomitant]

REACTIONS (1)
  - DERMATITIS [None]
